FAERS Safety Report 13442823 (Version 1)
Quarter: 2017Q2

REPORT INFORMATION
  Report Type: Spontaneous
  Country: US (occurrence: US)
  Receive Date: 20170414
  Receipt Date: 20170414
  Transmission Date: 20170830
  Serious: Yes (Hospitalization, Other)
  Sender: FDA-Public Use
  Company Number: US-009507513-1704USA002555

PATIENT
  Age: 17 Year
  Sex: Female

DRUGS (12)
  1. MAGNESIUM SULFATE. [Concomitant]
     Active Substance: MAGNESIUM SULFATE
     Dosage: 2 GM
  2. MAGNESIUM SULFATE. [Concomitant]
     Active Substance: MAGNESIUM SULFATE
     Dosage: 2 G, UNK
     Route: 042
  3. EPINEPHRINE. [Concomitant]
     Active Substance: EPINEPHRINE
     Dosage: 0.3 MG, TWO DOSE
     Route: 058
  4. PROVENTIL [Suspect]
     Active Substance: ALBUTEROL
     Dosage: 20 MG PER HOUR
  5. MAGNESIUM SULFATE. [Concomitant]
     Active Substance: MAGNESIUM SULFATE
     Dosage: UNK
  6. METHYLPREDNISOLONE. [Concomitant]
     Active Substance: METHYLPREDNISOLONE
     Dosage: 125 MG, UNK
     Route: 042
  7. PROVENTIL [Suspect]
     Active Substance: ALBUTEROL
     Dosage: 4 TREATMENTS WITH EACH DOSE CONTAINING 5 MG OF ALBUTEROL SULFATE
  8. TERBUTALINE SULFATE. [Concomitant]
     Active Substance: TERBUTALINE SULFATE
     Dosage: 10 MICROGRAM PER KILOGRAM, BOLUS
  9. TERBUTALINE SULFATE. [Concomitant]
     Active Substance: TERBUTALINE SULFATE
     Dosage: 0.4 MICROGRAM/KG/MIN, DRIPUNK
  10. PROVENTIL [Suspect]
     Active Substance: ALBUTEROL
     Indication: ASTHMA
     Dosage: 2 PUFFS WITH SPACER TWO TIMES DAILY
  11. TERBUTALINE SULFATE. [Concomitant]
     Active Substance: TERBUTALINE SULFATE
     Dosage: 0.4 MICROGRAM/KG/MIN, DRIP
  12. SODIUM CHLORIDE. [Concomitant]
     Active Substance: SODIUM CHLORIDE
     Dosage: ONE LITER OF NORMAL SALINE BOLUS

REACTIONS (2)
  - Bronchospasm paradoxical [Recovered/Resolved]
  - Drug ineffective [Unknown]
